FAERS Safety Report 6148488-2 (Version None)
Quarter: 2009Q2

REPORT INFORMATION
  Report Type: 
  Country: None (occurrence: None)
  Receive Date: 20090408
  Receipt Date: 20090330
  Transmission Date: 20091009
  Serious: Yes (Other)
  Sender: FDA-Public Use
  Company Number: PHEH2009US03169

PATIENT
  Age: 6 Year
  Sex: Female
  Weight: 16.327 kg

DRUGS (7)
  1. FORADIL [Suspect]
     Dosage: UNK
     Dates: start: 20090301, end: 20090301
  2. OMNICEF [Concomitant]
  3. AUGMENTIN                               /SCH/ [Concomitant]
  4. PENICILLIN ^GRUNENTHAL^ [Concomitant]
  5. AMOXICILLIN [Concomitant]
  6. ALBUTEROL [Concomitant]
  7. FLOVENT [Concomitant]

REACTIONS (5)
  - DRUG DISPENSING ERROR [None]
  - HYPERSENSITIVITY [None]
  - IMMUNE SYSTEM DISORDER [None]
  - INFLUENZA [None]
  - PNEUMONIA [None]
